FAERS Safety Report 9219069 (Version 1)
Quarter: 2013Q2

REPORT INFORMATION
  Report Type: Spontaneous
  Country: FR (occurrence: FR)
  Receive Date: 20130409
  Receipt Date: 20130409
  Transmission Date: 20140414
  Serious: Yes (Other)
  Sender: FDA-Public Use
  Company Number: PHHY2013FR034111

PATIENT
  Sex: Male

DRUGS (1)
  1. ILARIS [Suspect]

REACTIONS (2)
  - Deafness [Unknown]
  - Condition aggravated [Unknown]
